FAERS Safety Report 8759571 (Version 2)
Quarter: 2012Q4

REPORT INFORMATION
  Report Type: 
  Country: FR (occurrence: FR)
  Receive Date: 20120829
  Receipt Date: 20121017
  Transmission Date: 20130627
  Serious: Yes (Other)
  Sender: FDA-Public Use
  Company Number: PHHY2012FR072949

PATIENT
  Age: 71 Year
  Sex: Female

DRUGS (1)
  1. TRIAMCINOLONE [Suspect]

REACTIONS (2)
  - Retinal deposits [Unknown]
  - Visual acuity reduced [Unknown]
